FAERS Safety Report 5372397-X (Version None)
Quarter: 2007Q2

REPORT INFORMATION
  Report Type: 
  Country: None (occurrence: None)
  Receive Date: 20070627
  Receipt Date: 20070516
  Transmission Date: 20071010
  Serious: No
  Sender: FDA-Public Use
  Company Number: US-BRISTOL-MYERS SQUIBB COMPANY-13765490

PATIENT
  Sex: Female
  Weight: 74 kg

DRUGS (4)
  1. SPRYCEL [Suspect]
     Indication: LEUKAEMIA
     Route: 048
     Dates: start: 20070426
  2. LASIX [Concomitant]
  3. ADVAIR DISKUS 100/50 [Concomitant]
  4. DIPHENHYDRAMINE HCL [Concomitant]

REACTIONS (2)
  - PRURITUS [None]
  - URTICARIA [None]
